FAERS Safety Report 4277018-5 (Version None)
Quarter: 2004Q1

REPORT INFORMATION
  Report Type: 
  Country: None (occurrence: None)
  Receive Date: 20040120
  Receipt Date: 20040120
  Transmission Date: 20041129
  Serious: No
  Sender: FDA-Public Use
  Company Number: None

PATIENT
  Sex: Male
  Weight: 73.7 kg

DRUGS (5)
  1. IRESSA [Suspect]
     Indication: NEOPLASM RECURRENCE
     Dosage: 250 MG QD PO
     Route: 048
     Dates: start: 20030820, end: 20040118
  2. IRESSA [Suspect]
     Indication: SQUAMOUS CELL CARCINOMA
     Dosage: 250 MG QD PO
     Route: 048
     Dates: start: 20030820, end: 20040118
  3. CELEBREX [Suspect]
     Indication: NEOPLASM RECURRENCE
     Dosage: 400 MG BID PO
     Route: 048
     Dates: start: 20030820, end: 20040118
  4. CELEBREX [Suspect]
     Indication: SQUAMOUS CELL CARCINOMA
     Dosage: 400 MG BID PO
     Route: 048
     Dates: start: 20030820, end: 20040118
  5. ATIVAN [Concomitant]

REACTIONS (1)
  - GRAND MAL CONVULSION [None]
